FAERS Safety Report 4416675-7 (Version None)
Quarter: 2004Q2

REPORT INFORMATION
  Report Type: 
  Country: None (occurrence: None)
  Receive Date: 20040630
  Receipt Date: 20040416
  Transmission Date: 20050107
  Serious: Yes (Hospitalization)
  Sender: FDA-Public Use
  Company Number: 04P-163-0257782-00

PATIENT
  Age: 50 Year
  Sex: Male
  Weight: 74.8435 kg

DRUGS (12)
  1. HUMIRA [Suspect]
     Indication: RHEUMATOID ARTHRITIS
     Dosage: 40 MG 1 IN 2 WK SUBCUTANEOUS
     Route: 058
     Dates: start: 20030101
  2. FOLIC ACID [Concomitant]
  3. SERTRALINE HYDROCHLORIDE [Concomitant]
  4. ATORVASTATIN [Concomitant]
  5. HYDROCHLOROTHIAZIDE [Concomitant]
  6. PREDNISONE [Concomitant]
  7. SODIUM [Concomitant]
  8. CLOPIDOGREL BISULFATE [Concomitant]
  9. LISINOPRIL [Concomitant]
  10. TOPROL-XL [Concomitant]
  11. BUPROPION HYDROCHLORIDE [Concomitant]
  12. METHOTREXATE SODIUM [Concomitant]

REACTIONS (2)
  - INJECTION SITE BURNING [None]
  - MYOCARDIAL INFARCTION [None]
